FAERS Safety Report 4465073-9 (Version None)
Quarter: 2004Q3

REPORT INFORMATION
  Report Type: 
  Country: None (occurrence: None)
  Receive Date: 20040928
  Receipt Date: 20040928
  Transmission Date: 20050211
  Serious: No
  Sender: FDA-Public Use
  Company Number: None

PATIENT
  Sex: Female
  Weight: 69 kg

DRUGS (3)
  1. MINOCIN [Suspect]
     Indication: ACNE
     Dosage: 100 MG TWICE DAILY ORAL
     Route: 048
     Dates: start: 20030601, end: 20031126
  2. ZOLOFT [Concomitant]
  3. MULTI-VITAMIN [Concomitant]

REACTIONS (1)
  - BENIGN INTRACRANIAL HYPERTENSION [None]
